FAERS Safety Report 5550838-2 (Version None)
Quarter: 2007Q4

REPORT INFORMATION
  Report Type: 
  Country: None (occurrence: None)
  Receive Date: 20071212
  Receipt Date: 20070518
  Transmission Date: 20080405
  Serious: No
  Sender: FDA-Public Use
  Company Number: US-AMGEN-KDL225468

PATIENT
  Sex: Female

DRUGS (4)
  1. ENBREL [Suspect]
     Indication: RHEUMATOID ARTHRITIS
     Route: 058
     Dates: start: 20070113
  2. METHOTREXATE [Concomitant]
     Route: 058
     Dates: start: 20060801
  3. ARAVA [Concomitant]
     Dates: start: 20060801
  4. PLAQUENIL [Concomitant]
     Dates: start: 20060801

REACTIONS (4)
  - DRUG INEFFECTIVE [None]
  - HYPOAESTHESIA [None]
  - PAIN [None]
  - WALKING AID USER [None]
